FAERS Safety Report 14614803 (Version 12)
Quarter: 2020Q3

REPORT INFORMATION
  Report Type: Spontaneous
  Country: FR (occurrence: FR)
  Receive Date: 20180308
  Receipt Date: 20200729
  Transmission Date: 20201102
  Serious: Yes (Hospitalization, Other)
  Sender: FDA-Public Use
  Company Number: FR-BRISTOL-MYERS SQUIBB COMPANY-BMS-2018-020112

PATIENT
  Age: 74 Year
  Sex: Male
  Weight: 98 kg

DRUGS (15)
  1. CORTISONE [Concomitant]
     Active Substance: CORTISONE
     Indication: PAIN
     Dosage: 10 MILLIGRAM, QD
     Route: 065
  2. AMIODARONE SANDOZ [Suspect]
     Active Substance: AMIODARONE
     Indication: ARRHYTHMIA
     Dosage: 1 DOSAGE FORM, QD
     Route: 065
     Dates: start: 20170911, end: 20171228
  3. COLCHICINE. [Concomitant]
     Active Substance: COLCHICINE
     Indication: GOUT
  4. COLCHICINE. [Concomitant]
     Active Substance: COLCHICINE
     Indication: INFLAMMATION
     Dosage: UNK
     Route: 065
  5. LOVENOX [LEVOFLOXACIN] [Concomitant]
     Active Substance: LEVOFLOXACIN
     Indication: PRODUCT USED FOR UNKNOWN INDICATION
     Dosage: UNK, Q12H (6000 IU ANTI XA/0.6 ML SYRINGE)
     Route: 058
     Dates: start: 20170805
  6. IBUFETUM [Concomitant]
     Active Substance: IBUPROFEN
     Indication: PRODUCT USED FOR UNKNOWN INDICATION
     Dosage: 1 DOSAGE FORM, TID
     Route: 065
     Dates: start: 20171009
  7. COLCHICINE. [Concomitant]
     Active Substance: COLCHICINE
     Indication: OEDEMA
  8. BISOPROLOL SANDOZ [Suspect]
     Active Substance: BISOPROLOL
     Dosage: 10 MILLIGRAM, QD (MORNING)
     Route: 065
  9. CORTISONE [Concomitant]
     Active Substance: CORTISONE
     Dosage: 60 MILLIGRAM, QD
     Route: 065
     Dates: start: 20171229
  10. BISOPROLOL SANDOZ [Suspect]
     Active Substance: BISOPROLOL
     Indication: PRODUCT USED FOR UNKNOWN INDICATION
     Dosage: 2.5 MILLIGRAM, QD MORNING
     Route: 065
     Dates: start: 20170805
  11. DOLIPRANE [Concomitant]
     Active Substance: ACETAMINOPHEN
     Indication: PRODUCT USED FOR UNKNOWN INDICATION
     Dosage: 3 GRAM
     Route: 065
  12. OFLOCET [OFLOXACIN] [Concomitant]
     Active Substance: OFLOXACIN
     Indication: PRODUCT USED FOR UNKNOWN INDICATION
     Dosage: 200 MILLIGRAM, IN THE MORNING AN EVENING FOR 10 DAY WAS PROPOSED
     Route: 065
  13. ELIQUIS [Suspect]
     Active Substance: APIXABAN
     Indication: ANTICOAGULANT THERAPY
     Dosage: 1 DOSAGE FORM, BID
     Route: 065
  14. AMIODARONE SANDOZ [Suspect]
     Active Substance: AMIODARONE
     Indication: ATRIAL FIBRILLATION
  15. CORTISONE [Concomitant]
     Active Substance: CORTISONE
     Dosage: 20 MILLIGRAM, QD (EASTER)
     Route: 065
     Dates: end: 2019

REACTIONS (41)
  - Paralysis [Recovered/Resolved]
  - Weight decreased [Recovered/Resolved]
  - Vomiting [Recovered/Resolved]
  - Dyspnoea [Not Recovered/Not Resolved]
  - Myalgia [Recovered/Resolved]
  - C-reactive protein increased [Recovered/Resolved]
  - Urinary tract disorder [Recovered/Resolved]
  - Hyperhidrosis [Unknown]
  - Neck pain [Unknown]
  - Taste disorder [Recovered/Resolved]
  - Blindness [Recovered/Resolved]
  - Pain [Unknown]
  - Vitamin D decreased [Unknown]
  - Somatic dysfunction [Unknown]
  - Arthralgia [Not Recovered/Not Resolved]
  - Hypoaesthesia [Unknown]
  - Renal injury [Recovered/Resolved]
  - Temperature intolerance [Recovered/Resolved]
  - Anaemia [Unknown]
  - Rheumatic disorder [Unknown]
  - Gait inability [Not Recovered/Not Resolved]
  - Nausea [Recovered/Resolved]
  - Fatigue [Recovered/Resolved]
  - Blood creatinine increased [Recovered/Resolved]
  - Gout [Unknown]
  - Pain in extremity [Recovering/Resolving]
  - Movement disorder [Unknown]
  - Arthralgia [Unknown]
  - Inflammation [Unknown]
  - Benign prostatic hyperplasia [Unknown]
  - Constipation [Recovered/Resolved]
  - Vertigo [Not Recovered/Not Resolved]
  - Tremor [Recovered/Resolved]
  - Oedema peripheral [Recovered/Resolved]
  - Nervousness [Recovered/Resolved]
  - Dizziness [Recovered/Resolved]
  - Muscular weakness [Recovered/Resolved]
  - White blood cell disorder [Recovered/Resolved]
  - Nerve injury [Recovered/Resolved]
  - Hyperleukocytosis [Unknown]
  - Back pain [Unknown]

NARRATIVE: CASE EVENT DATE: 20170911
